FAERS Safety Report 7784726-8 (Version None)
Quarter: 2011Q3

REPORT INFORMATION
  Report Type: 
  Country: None (occurrence: None)
  Receive Date: 20110928
  Receipt Date: 20110919
  Transmission Date: 20111222
  Serious: Yes (Hospitalization)
  Sender: FDA-Public Use
  Company Number: US-ASTRAZENECA-2010SE55672

PATIENT
  Age: 73 Year
  Sex: Female
  Weight: 44.9 kg

DRUGS (5)
  1. SYMBICORT [Suspect]
     Dosage: 160/4.5 2 PUFFS PM PRN
     Route: 055
  2. SYMBICORT [Suspect]
     Indication: ASTHMA
     Dosage: 160/4.5 2 PUFFS IN AM
     Route: 055
  3. SYMBICORT [Suspect]
     Dosage: 160/4.5 2 PUFFS PM PRN
     Route: 055
  4. CORTICOSTEROIDS [Concomitant]
     Route: 048
  5. SYMBICORT [Suspect]
     Indication: CHRONIC OBSTRUCTIVE PULMONARY DISEASE
     Dosage: 160/4.5 2 PUFFS IN AM
     Route: 055

REACTIONS (4)
  - DRUG DOSE OMISSION [None]
  - PNEUMOTHORAX [None]
  - MENINGITIS [None]
  - HEADACHE [None]
